FAERS Safety Report 13429834 (Version 1)
Quarter: 2017Q2

REPORT INFORMATION
  Report Type: Spontaneous
  Country: TW (occurrence: TW)
  Receive Date: 20170412
  Receipt Date: 20170412
  Transmission Date: 20170830
  Serious: Yes (Death)
  Sender: FDA-Public Use
  Company Number: TW-ROCHE-1918180

PATIENT
  Age: 56 Year
  Sex: Female
  Weight: 67 kg

DRUGS (3)
  1. AVASTIN [Suspect]
     Active Substance: BEVACIZUMAB
     Indication: SQUAMOUS CELL CARCINOMA
     Route: 065
     Dates: start: 20150527
  2. AVASTIN [Suspect]
     Active Substance: BEVACIZUMAB
     Route: 034
     Dates: start: 20150718, end: 20150718
  3. TOPOTECAN [Suspect]
     Active Substance: TOPOTECAN HYDROCHLORIDE
     Indication: SQUAMOUS CELL CARCINOMA
     Route: 065
     Dates: start: 20150527, end: 20160119

REACTIONS (7)
  - Apnoea [Fatal]
  - Hypertension [Unknown]
  - Anaemia [Unknown]
  - Pulmonary embolism [Fatal]
  - Proteinuria [Unknown]
  - Neutropenia [Unknown]
  - Thrombocytopenia [Unknown]

NARRATIVE: CASE EVENT DATE: 20160220
